FAERS Safety Report 8269337-2 (Version None)
Quarter: 2012Q2

REPORT INFORMATION
  Report Type: 
  Country: None (occurrence: None)
  Receive Date: 20120409
  Receipt Date: 20120404
  Transmission Date: 20120825
  Serious: No
  Sender: FDA-Public Use
  Company Number: US-BAYER-2012-033932

PATIENT

DRUGS (1)
  1. ALEVE (CAPLET) [Suspect]

REACTIONS (1)
  - PSYCHOMOTOR HYPERACTIVITY [None]
